FAERS Safety Report 16740512 (Version 1)
Quarter: 2019Q3

REPORT INFORMATION
  Report Type: Spontaneous
  Country: US (occurrence: US)
  Receive Date: 20190826
  Receipt Date: 20190826
  Transmission Date: 20191005
  Serious: Yes (Hospitalization, Disabling, Other)
  Sender: FDA-Public Use
  Company Number: US-AMGEN-USASP2019133774

PATIENT
  Age: 86 Year
  Sex: Female

DRUGS (3)
  1. METHOTREXATE. [Concomitant]
     Active Substance: METHOTREXATE
     Indication: RHEUMATOID ARTHRITIS
  2. PROLIA [Suspect]
     Active Substance: DENOSUMAB
     Indication: OSTEOPOROSIS POSTMENOPAUSAL
     Dosage: 60 MILLIGRAM, Q6MO
     Route: 065
     Dates: start: 201709, end: 201810
  3. FOSAMAX [Concomitant]
     Active Substance: ALENDRONATE SODIUM

REACTIONS (19)
  - Loss of consciousness [Unknown]
  - Mobility decreased [Unknown]
  - Feeling abnormal [Unknown]
  - Dysphagia [Unknown]
  - Dysstasia [Unknown]
  - Head injury [Unknown]
  - Pleural effusion [Unknown]
  - Fall [Unknown]
  - Atrial fibrillation [Unknown]
  - Vomiting [Unknown]
  - Pain in extremity [Not Recovered/Not Resolved]
  - Hypoaesthesia oral [Unknown]
  - Lip swelling [Unknown]
  - Rash pustular [Unknown]
  - Neuralgia [Recovered/Resolved]
  - Urinary incontinence [Unknown]
  - Blood pressure increased [Not Recovered/Not Resolved]
  - Malaise [Unknown]
  - Weight decreased [Not Recovered/Not Resolved]

NARRATIVE: CASE EVENT DATE: 201712
